FAERS Safety Report 4917057-1 (Version None)
Quarter: 2006Q1

REPORT INFORMATION
  Report Type: 
  Country: None (occurrence: None)
  Receive Date: 20060214
  Receipt Date: 20060203
  Transmission Date: 20060701
  Serious: Yes (Other)
  Sender: FDA-Public Use
  Company Number: 200610505GDS

PATIENT
  Age: 77 Year
  Sex: Female

DRUGS (4)
  1. CIPROFLOXACIN [Suspect]
     Dosage: 500 MG, BID, ORAL
     Route: 048
  2. VANCOMYCIN [Suspect]
     Dosage: 1 G, INTRAVENOUS
     Route: 042
  3. CLINDAMYCIN [Concomitant]
  4. ZITHROMAX [Concomitant]

REACTIONS (2)
  - HAEMATURIA [None]
  - RENAL FAILURE ACUTE [None]
